FAERS Safety Report 8406845-5 (Version None)
Quarter: 2012Q2

REPORT INFORMATION
  Report Type: 
  Country: None (occurrence: None)
  Receive Date: 20120604
  Receipt Date: 20120525
  Transmission Date: 20120825
  Serious: Yes (Hospitalization, Other)
  Sender: FDA-Public Use
  Company Number: US-PFIZER INC-2012049423

PATIENT
  Sex: Male

DRUGS (15)
  1. NIMOTOP [Concomitant]
     Dosage: 60 MG, EVERY 4 HRS
     Dates: start: 19971202
  2. ZOFRAN [Concomitant]
     Dosage: 14 MG, UNK
     Route: 042
     Dates: start: 19971201, end: 19971202
  3. DILANTIN [Suspect]
     Dosage: 1GM INTRAVENOUS IN 250CC NORMAL SALINE
     Route: 042
     Dates: start: 19971201
  4. DILANTIN [Suspect]
     Indication: SUBARACHNOID HAEMORRHAGE
     Dosage: 200 MG, 2X/DAY
     Route: 048
     Dates: start: 19971201
  5. ROCEPHIN [Concomitant]
     Dosage: 2000MG/50 ML INJECTION
     Dates: start: 19971202
  6. DILANTIN [Suspect]
     Dosage: 100 MG, 2X/DAY
     Dates: end: 19971220
  7. PROCARDIA [Concomitant]
     Dosage: UNK, EVERY 4 HOURS
     Route: 048
     Dates: start: 19971201
  8. PHENYLEPHRINE HCL [Concomitant]
     Indication: MYDRIASIS
     Dosage: ONE DROP EVERY 5MINUTES THREE TIMES FOR BOTH EYES
     Route: 047
     Dates: start: 19971203
  9. ACETAMINOPHEN [Concomitant]
     Indication: PAIN
     Dosage: 650 MG, EVERY 4 HRS
     Route: 048
     Dates: start: 19971202, end: 19971205
  10. MYDRIACYL [Concomitant]
     Indication: MYDRIASIS
     Dosage: ONE DROP EVERY 5MINUTES THREE TIMES FOR BOTH EYES
     Route: 047
     Dates: start: 19971203
  11. DILANTIN [Suspect]
     Dosage: 200 MG, 2X/DAY
     Route: 048
     Dates: start: 19971206
  12. SURFAK [Concomitant]
     Dosage: 240 MG, 1X/DAY
     Route: 048
     Dates: start: 19971201
  13. ZANTAC [Concomitant]
     Dosage: 50MG/3.3ML EVERY SIX HOURS
     Route: 048
     Dates: start: 19971203
  14. ACETAMINOPHEN W/ CODEINE [Concomitant]
     Dosage: UNK
     Dates: start: 19971205, end: 19971208
  15. NIMODIPINE [Concomitant]
     Dosage: 60 MG, 1X/DAY
     Route: 048
     Dates: start: 19971210

REACTIONS (1)
  - STEVENS-JOHNSON SYNDROME [None]
